FAERS Safety Report 10448877 (Version 3)
Quarter: 2015Q1

REPORT INFORMATION
  Report Type: Report from Study
  Country: US (occurrence: US)
  Receive Date: 20140912
  Receipt Date: 20150126
  Transmission Date: 20150720
  Serious: Yes (Hospitalization)
  Sender: FDA-Public Use
  Company Number: US-BIOGENIDEC-2014BI090989

PATIENT
  Age: 74 Year
  Sex: Female

DRUGS (1)
  1. TECFIDERA [Suspect]
     Active Substance: DIMETHYL FUMARATE
     Indication: MULTIPLE SCLEROSIS
     Route: 048
     Dates: start: 201309

REACTIONS (7)
  - Multiple sclerosis relapse [Unknown]
  - Fibula fracture [Unknown]
  - Urinary tract infection [Unknown]
  - Anaemia [Unknown]
  - Rheumatoid arthritis [Unknown]
  - Visual acuity reduced [Not Recovered/Not Resolved]
  - Osteomyelitis [Unknown]

NARRATIVE: CASE EVENT DATE: 201408
